FAERS Safety Report 25146098 (Version 1)
Quarter: 2025Q2

REPORT INFORMATION
  Report Type: Spontaneous
  Country: US (occurrence: US)
  Receive Date: 20250401
  Receipt Date: 20250401
  Transmission Date: 20250716
  Serious: No
  Sender: Kenvue
  Company Number: US-KENVUE-20250301017

PATIENT
  Age: 43 Year
  Sex: Male

DRUGS (5)
  1. ZYRTEC [Suspect]
     Active Substance: CETIRIZINE HYDROCHLORIDE
     Indication: Drug hypersensitivity
     Route: 065
     Dates: start: 20250301
  2. saline eye wash [Concomitant]
     Indication: Drug hypersensitivity
     Route: 047
     Dates: start: 20250301
  3. PREDNISOLONE [Concomitant]
     Active Substance: PREDNISOLONE
     Indication: Drug hypersensitivity
     Route: 047
     Dates: start: 20250301
  4. cold compress [Concomitant]
     Indication: Drug hypersensitivity
     Dates: start: 20250301
  5. VISINE RED EYE COMFORT [Concomitant]
     Active Substance: TETRAHYDROZOLINE HYDROCHLORIDE
     Indication: Product used for unknown indication
     Route: 047
     Dates: start: 20250301

REACTIONS (1)
  - Off label use [Unknown]

NARRATIVE: CASE EVENT DATE: 20250301
